FAERS Safety Report 23604997 (Version 1)
Quarter: 2024Q1

REPORT INFORMATION
  Report Type: Spontaneous
  Country: FR (occurrence: FR)
  Receive Date: 20240307
  Receipt Date: 20240307
  Transmission Date: 20240410
  Serious: Yes (Hospitalization)
  Sender: FDA-Public Use
  Company Number: FR-Fertin Pharma A/S-2154132

PATIENT
  Age: 66 Year
  Sex: Female

DRUGS (6)
  1. NICOTINE POLACRILEX [Suspect]
     Active Substance: NICOTINE
     Route: 048
     Dates: start: 20000101, end: 20200110
  2. FOLIC ACID [Suspect]
     Active Substance: FOLIC ACID
  3. ZOLPIDEM TARTRATE [Suspect]
     Active Substance: ZOLPIDEM TARTRATE
  4. RAMIPRIL [Suspect]
     Active Substance: RAMIPRIL
  5. BISOPROLOL FUMARATE [Suspect]
     Active Substance: BISOPROLOL FUMARATE
  6. ATORVASTATIN CALCIUM [Suspect]
     Active Substance: ATORVASTATIN CALCIUM

REACTIONS (3)
  - Axonal neuropathy [Recovered/Resolved with Sequelae]
  - Paraesthesia [Recovered/Resolved with Sequelae]
  - Loss of proprioception [Recovered/Resolved with Sequelae]

NARRATIVE: CASE EVENT DATE: 20190801
